FAERS Safety Report 4724020-2 (Version None)
Quarter: 2005Q3

REPORT INFORMATION
  Report Type: 
  Country: None (occurrence: None)
  Receive Date: 20050722
  Receipt Date: 20050711
  Transmission Date: 20060218
  Serious: Yes (Other)
  Sender: FDA-Public Use
  Company Number: 2005PV000278

PATIENT
  Age: 85 Year
  Sex: Female
  Weight: 99.7913 kg

DRUGS (9)
  1. BYETTA [Suspect]
     Indication: DIABETES MELLITUS NON-INSULIN-DEPENDENT
     Dosage: 5 UG; BID; SC
     Route: 058
     Dates: start: 20050707, end: 20050707
  2. LANTUS [Concomitant]
  3. HUMALOG [Concomitant]
  4. REPAGLINIDE [Concomitant]
  5. COZAAR [Concomitant]
  6. NORVASC [Concomitant]
  7. ZOCOR [Concomitant]
  8. SYNTHROID [Concomitant]
  9. ASPIRIN [Concomitant]

REACTIONS (1)
  - DRUG HYPERSENSITIVITY [None]
